FAERS Safety Report 23777740 (Version 1)
Quarter: 2024Q2

REPORT INFORMATION
  Report Type: Spontaneous
  Country: CN (occurrence: CN)
  Receive Date: 20240424
  Receipt Date: 20240424
  Transmission Date: 20240716
  Serious: Yes (Death, Other)
  Sender: FDA-Public Use
  Company Number: CN-PFIZER INC-PV202400051253

PATIENT
  Age: 55 Year
  Sex: Male

DRUGS (13)
  1. SOLU-MEDROL [Suspect]
     Active Substance: METHYLPREDNISOLONE SODIUM SUCCINATE
     Indication: Anti-melanoma differentiation-associated protein 5 antibody positive
     Dosage: 250 MG FOR 3 DAYS
     Route: 042
     Dates: start: 20211003, end: 20211006
  2. SOLU-MEDROL [Suspect]
     Active Substance: METHYLPREDNISOLONE SODIUM SUCCINATE
     Indication: Dermatomyositis
     Dosage: 40 MG, 1X/DAY FOR MAINTENANCE
     Route: 042
     Dates: start: 202110
  3. CYCLOPHOSPHAMIDE ANHYDROUS [Suspect]
     Active Substance: CYCLOPHOSPHAMIDE ANHYDROUS
     Indication: Anti-melanoma differentiation-associated protein 5 antibody positive
     Dosage: 0.6 G ONCE
     Route: 041
     Dates: start: 202110
  4. CYCLOPHOSPHAMIDE ANHYDROUS [Suspect]
     Active Substance: CYCLOPHOSPHAMIDE ANHYDROUS
     Indication: Dermatomyositis
  5. IMMUNE GLOBULIN NOS [Suspect]
     Active Substance: IMMUNE GLOBULIN NOS
     Indication: Anti-melanoma differentiation-associated protein 5 antibody positive
     Dosage: 25 G, 1X/DAY FOR 3 DAYS
     Route: 042
     Dates: start: 20211003, end: 20211006
  6. IMMUNE GLOBULIN NOS [Suspect]
     Active Substance: IMMUNE GLOBULIN NOS
     Indication: Dermatomyositis
  7. MYCOPHENOLATE MOFETIL [Suspect]
     Active Substance: MYCOPHENOLATE MOFETIL
     Indication: Anti-melanoma differentiation-associated protein 5 antibody positive
     Dosage: 1 G, 2X/DAY FOR MAINTENANCE
     Dates: start: 202110
  8. MYCOPHENOLATE MOFETIL [Suspect]
     Active Substance: MYCOPHENOLATE MOFETIL
     Indication: Dermatomyositis
  9. NINTEDANIB [Suspect]
     Active Substance: NINTEDANIB
     Indication: Anti-melanoma differentiation-associated protein 5 antibody positive
     Dosage: 150 MG, 2X/DAY FOR MAINTENANCE
  10. NINTEDANIB [Suspect]
     Active Substance: NINTEDANIB
     Indication: Dermatomyositis
  11. RITUXIMAB [Suspect]
     Active Substance: RITUXIMAB
     Indication: Anti-melanoma differentiation-associated protein 5 antibody positive
     Dosage: 500 MG ONCE
     Route: 042
     Dates: start: 202110
  12. RITUXIMAB [Suspect]
     Active Substance: RITUXIMAB
     Indication: Dermatomyositis
  13. HEPARIN [Concomitant]
     Active Substance: HEPARIN SODIUM
     Indication: Anticoagulant therapy
     Dosage: UNK

REACTIONS (3)
  - Drug ineffective [Fatal]
  - Klebsiella infection [Fatal]
  - Septic shock [Fatal]

NARRATIVE: CASE EVENT DATE: 20211001
